FAERS Safety Report 10446539 (Version 1)
Quarter: 2014Q3

REPORT INFORMATION
  Report Type: Spontaneous
  Country: US (occurrence: None)
  Receive Date: 20140910
  Receipt Date: 20140910
  Transmission Date: 20150326
  Serious: Yes (Other)
  Sender: FDA-Public Use
  Company Number: None

PATIENT
  Age: 70 Year
  Sex: Male
  Weight: 75.3 kg

DRUGS (3)
  1. ABRAXANE [Suspect]
     Active Substance: PACLITAXEL
     Indication: PANCREATIC CARCINOMA
     Dosage: EVERY OTHER WED. AT UCLA ONCOLOGIST OFFICE BY INFUSION
     Dates: start: 201311, end: 20140903
  2. ABRAXANE [Suspect]
     Active Substance: PACLITAXEL
     Indication: METASTASES TO LIVER
     Dosage: EVERY OTHER WED. AT UCLA ONCOLOGIST OFFICE BY INFUSION
     Dates: start: 201311, end: 20140903
  3. VITAMIN D2 [Concomitant]
     Active Substance: ERGOCALCIFEROL

REACTIONS (1)
  - Alopecia [None]
